FAERS Safety Report 15907683 (Version 1)
Quarter: 2019Q1

REPORT INFORMATION
  Report Type: Spontaneous
  Country: US (occurrence: US)
  Receive Date: 20190204
  Receipt Date: 20190204
  Transmission Date: 20190417
  Serious: Yes (Disabling)
  Sender: FDA-Public Use
  Company Number: None

PATIENT
  Age: 57 Year
  Sex: Male
  Weight: 57.6 kg

DRUGS (3)
  1. CIPRO [Suspect]
     Active Substance: CIPROFLOXACIN HYDROCHLORIDE
     Indication: PROSTATE INFECTION
     Route: 048
  2. VITAMIN D [Concomitant]
     Active Substance: CHOLECALCIFEROL
  3. TRELEGY ELLIPTA [Concomitant]
     Active Substance: FLUTICASONE FUROATE\UMECLIDINIUM BROMIDE\VILANTEROL TRIFENATATE

REACTIONS (10)
  - Anxiety [None]
  - Fibromyalgia [None]
  - Stress [None]
  - Hypersensitivity [None]
  - Sleep disorder [None]
  - Calculus bladder [None]
  - Supraventricular tachycardia [None]
  - Fatigue [None]
  - Neuralgia [None]
  - Toxicity to various agents [None]

NARRATIVE: CASE EVENT DATE: 20090101
